FAERS Safety Report 5823151-3 (Version None)
Quarter: 2008Q3

REPORT INFORMATION
  Report Type: 
  Country: None (occurrence: None)
  Receive Date: 20080725
  Receipt Date: 20080715
  Transmission Date: 20090109
  Serious: Yes (Other)
  Sender: FDA-Public Use
  Company Number: PHEH2008US05120

PATIENT
  Age: 76 Year
  Sex: Male
  Weight: 104 kg

DRUGS (14)
  1. GLEEVEC [Suspect]
     Indication: CHRONIC MYELOID LEUKAEMIA
     Dosage: 400 MG, QD
     Route: 048
     Dates: start: 20060101
  2. OXALIPLATIN [Concomitant]
     Indication: COLON CANCER
  3. LEUCOVORIN CALCIUM [Concomitant]
     Indication: COLON CANCER
  4. FLUOROURACIL [Concomitant]
     Indication: COLON CANCER
  5. AVASTIN [Concomitant]
     Indication: COLON CANCER
  6. CALCIUM GLUCONATE [Concomitant]
     Indication: COLON CANCER
  7. MAGNESIUM SULFATE [Concomitant]
  8. CELEXA [Concomitant]
  9. PHENERGAN ^AVENTIS PHARMA^ [Concomitant]
  10. GLUCOPHAGE [Concomitant]
  11. ADDERALL 10 [Concomitant]
  12. ALTACE [Concomitant]
  13. NIACIN [Concomitant]
  14. FISH OIL [Concomitant]

REACTIONS (4)
  - COLON CANCER METASTATIC [None]
  - COLONIC POLYP [None]
  - HYPOPHOSPHATAEMIA [None]
  - METASTASES TO LIVER [None]
